FAERS Safety Report 9162451 (Version 1)
Quarter: 2013Q1

REPORT INFORMATION
  Report Type: Spontaneous
  Country: GB (occurrence: None)
  Receive Date: 20130215
  Receipt Date: 20130215
  Transmission Date: 20140127
  Serious: Yes (Life-Threatening)
  Sender: FDA-Public Use
  Company Number: AUR-APL-2013-01282

PATIENT
  Age: 20 Year
  Sex: Female

DRUGS (1)
  1. NAPROXEN (NAPROXEN) [Suspect]
     Indication: BACK PAIN
     Dosage: 3 DOSAGE FORMS (1 DOSAGE FORMS, 3 IN 1 D). ORAL
     Route: 048
     Dates: start: 20130112, end: 20130118

REACTIONS (3)
  - Haematemesis [None]
  - Syncope [None]
  - Fall [None]
